FAERS Safety Report 12857223 (Version 1)
Quarter: 2016Q4

REPORT INFORMATION
  Report Type: Spontaneous
  Country: US (occurrence: US)
  Receive Date: 20161018
  Receipt Date: 20161018
  Transmission Date: 20170207
  Serious: Yes (Other)
  Sender: FDA-Public Use
  Company Number: US-SA-2016SA187500

PATIENT
  Age: 58 Year
  Sex: Male

DRUGS (3)
  1. LANTUS [Suspect]
     Active Substance: INSULIN GLARGINE
     Indication: TYPE 2 DIABETES MELLITUS
     Dosage: DOSE:70 UNIT(S)
     Route: 065
  2. HUMULIN R [Concomitant]
     Active Substance: INSULIN HUMAN
  3. LANTUS [Suspect]
     Active Substance: INSULIN GLARGINE
     Indication: TYPE 2 DIABETES MELLITUS
     Dosage: DOSE:90 UNIT(S)
     Route: 065
     Dates: end: 201602

REACTIONS (5)
  - Myocardial infarction [Unknown]
  - Localised infection [Unknown]
  - Glycosylated haemoglobin increased [Unknown]
  - Device occlusion [Unknown]
  - Bedridden [Unknown]

NARRATIVE: CASE EVENT DATE: 2014
